FAERS Safety Report 12196069 (Version 3)
Quarter: 2016Q2

REPORT INFORMATION
  Report Type: Spontaneous
  Country: CN (occurrence: CN)
  Receive Date: 20160321
  Receipt Date: 20160502
  Transmission Date: 20160815
  Serious: Yes (Hospitalization, Other)
  Sender: FDA-Public Use
  Company Number: CN-GILEAD-2016-0204239

PATIENT
  Age: 60 Year
  Sex: Male

DRUGS (6)
  1. HEPTODIN [Suspect]
     Active Substance: LAMIVUDINE
     Indication: HEPATITIS B
     Dosage: 1 DF (TABLET), QD
     Route: 048
  2. HEPTODIN [Suspect]
     Active Substance: LAMIVUDINE
     Dosage: 1 UNK, QD
     Route: 048
  3. HEPSERA [Suspect]
     Active Substance: ADEFOVIR DIPIVOXIL
     Dosage: 1 DF, QD
     Route: 048
  4. HEPSERA [Suspect]
     Active Substance: ADEFOVIR DIPIVOXIL
     Dosage: 1 UNK, QD
     Route: 048
  5. HEPTODIN [Suspect]
     Active Substance: LAMIVUDINE
     Dosage: 1 UNK, QD
     Route: 048
  6. HEPSERA [Suspect]
     Active Substance: ADEFOVIR DIPIVOXIL
     Indication: HEPATITIS B
     Dosage: 1 DF, QD
     Route: 048

REACTIONS (4)
  - Liver injury [Recovered/Resolved]
  - Viral mutation identified [Recovered/Resolved]
  - Gingival bleeding [Not Recovered/Not Resolved]
  - Spinal cord neoplasm [Recovered/Resolved]

NARRATIVE: CASE EVENT DATE: 201512
